FAERS Safety Report 8551565 (Version 2)
Quarter: 2013Q3

REPORT INFORMATION
  Report Type: Spontaneous
  Country: US (occurrence: US)
  Receive Date: 20120508
  Receipt Date: 20130821
  Transmission Date: 20140515
  Serious: Yes (Other)
  Sender: FDA-Public Use
  Company Number: US-BAYER-2012-043760

PATIENT
  Age: 22 Year
  Sex: Female
  Weight: 63 kg

DRUGS (2)
  1. BEYAZ [Suspect]
  2. LOESTRIN [Concomitant]
     Dosage: UNK
     Dates: start: 20101105

REACTIONS (1)
  - Thrombophlebitis superficial [None]
